FAERS Safety Report 24095427 (Version 1)
Quarter: 2024Q3

REPORT INFORMATION
  Report Type: Spontaneous
  Country: US (occurrence: US)
  Receive Date: 20240716
  Receipt Date: 20240716
  Transmission Date: 20241016
  Serious: No
  Sender: AUROBINDO
  Company Number: US-AUROBINDO-AUR-APL-2024-021289

PATIENT
  Age: 68 Year
  Sex: Female
  Weight: 62.595 kg

DRUGS (1)
  1. ZALEPLON [Suspect]
     Active Substance: ZALEPLON
     Indication: Sleep disorder
     Dosage: 1 DOSAGE FORM, AT BED TIME
     Route: 065
     Dates: start: 20240418, end: 20240419

REACTIONS (1)
  - Drug ineffective [Unknown]
